FAERS Safety Report 7455167-8 (Version None)
Quarter: 2011Q2

REPORT INFORMATION
  Report Type: 
  Country: None (occurrence: None)
  Receive Date: 20110503
  Receipt Date: 20110420
  Transmission Date: 20111010
  Serious: Yes (Hospitalization, Other)
  Sender: FDA-Public Use
  Company Number: PHFR2010GB05646

PATIENT
  Sex: Male

DRUGS (5)
  1. CLOBAZAM [Concomitant]
     Dosage: 10 G, UNK
  2. EPILIM CHRONO [Concomitant]
     Dosage: 2 G, UNK
     Route: 048
  3. HYOSCINE HYDROBROMIDE [Concomitant]
     Dosage: 300 UG, TID
  4. ACETAMINOPHEN [Concomitant]
  5. CLOZARIL [Suspect]
     Indication: SCHIZOPHRENIA
     Dosage: 250 MG, UNK
     Route: 048
     Dates: start: 20100707

REACTIONS (12)
  - TARDIVE DYSKINESIA [None]
  - AMNESIA [None]
  - DYSSTASIA [None]
  - URINARY TRACT INFECTION [None]
  - PETIT MAL EPILEPSY [None]
  - DYSARTHRIA [None]
  - UNRESPONSIVE TO STIMULI [None]
  - SOMNOLENCE [None]
  - MOBILITY DECREASED [None]
  - EPILEPSY [None]
  - BALANCE DISORDER [None]
  - URINE COLOUR ABNORMAL [None]
